FAERS Safety Report 21998661 (Version 2)
Quarter: 2023Q1

REPORT INFORMATION
  Report Type: Report from Study
  Country: CA (occurrence: CA)
  Receive Date: 20230216
  Receipt Date: 20230221
  Transmission Date: 20230418
  Serious: Yes (Other)
  Sender: FDA-Public Use
  Company Number: CA-HLS-202300309

PATIENT
  Age: 39 Year
  Sex: Female

DRUGS (1)
  1. CLOZARIL [Suspect]
     Active Substance: CLOZAPINE
     Indication: Product used for unknown indication
     Dosage: AT BEDTIME
     Route: 048
     Dates: start: 20230120

REACTIONS (13)
  - Neutrophil count increased [Not Recovered/Not Resolved]
  - Electrocardiogram ST segment abnormal [Unknown]
  - Electrocardiogram T wave abnormal [Unknown]
  - C-reactive protein increased [Not Recovered/Not Resolved]
  - Red blood cell count increased [Not Recovered/Not Resolved]
  - White blood cell count increased [Not Recovered/Not Resolved]
  - Mean cell haemoglobin decreased [Not Recovered/Not Resolved]
  - Mean cell haemoglobin concentration [Not Recovered/Not Resolved]
  - Mean cell volume abnormal [Not Recovered/Not Resolved]
  - Nucleated red cells [Not Recovered/Not Resolved]
  - Platelet count increased [Not Recovered/Not Resolved]
  - Red cell distribution width increased [Not Recovered/Not Resolved]
  - Chest pain [Unknown]

NARRATIVE: CASE EVENT DATE: 20230127
